FAERS Safety Report 10154929 (Version 2)
Quarter: 2014Q2

REPORT INFORMATION
  Report Type: Report from Study
  Country: ES (occurrence: ES)
  Receive Date: 20140506
  Receipt Date: 20140506
  Transmission Date: 20141212
  Serious: Yes (Hospitalization, Other)
  Sender: FDA-Public Use
  Company Number: ES-PFIZER INC-2014107617

PATIENT
  Age: 80 Year
  Sex: Male

DRUGS (2)
  1. BOSUTINIB [Suspect]
     Indication: CHRONIC MYELOID LEUKAEMIA
     Dosage: 500 MG, 1X/DAY (5 PILLS/DAY)
     Route: 048
     Dates: start: 20130220, end: 20131211
  2. BOSUTINIB [Suspect]
     Dosage: 250 MG, DAILY
     Route: 048
     Dates: start: 20140304, end: 20140317

REACTIONS (2)
  - Cardiac failure congestive [Recovered/Resolved]
  - Chronic obstructive pulmonary disease [Unknown]
